FAERS Safety Report 10550740 (Version 1)
Quarter: 2014Q4

REPORT INFORMATION
  Report Type: Spontaneous
  Country: US (occurrence: None)
  Receive Date: 20141028
  Receipt Date: 20141028
  Transmission Date: 20150529
  Serious: No
  Sender: FDA-Public Use
  Company Number: None

PATIENT
  Age: 76 Year
  Sex: Female
  Weight: 80.74 kg

DRUGS (12)
  1. MULTIVITAMS [Concomitant]
  2. METOPROLOL [Concomitant]
     Active Substance: METOPROLOL
  3. VALIUM [Concomitant]
     Active Substance: DIAZEPAM
  4. ASPIRIN. [Concomitant]
     Active Substance: ASPIRIN
  5. RANITIDINE [Concomitant]
     Active Substance: RANITIDINE\RANITIDINE HYDROCHLORIDE
  6. FISH OIL [Concomitant]
     Active Substance: FISH OIL
  7. VITAMC [Concomitant]
  8. COLESTIPOL [Suspect]
     Active Substance: COLESTIPOL
     Indication: BLOOD CHOLESTEROL INCREASED
     Route: 048
     Dates: start: 20141011, end: 20141016
  9. OMEPRAZOLE. [Concomitant]
     Active Substance: OMEPRAZOLE
  10. SYNTHROID [Concomitant]
     Active Substance: LEVOTHYROXINE SODIUM
  11. ZETIA [Concomitant]
     Active Substance: EZETIMIBE
  12. ENALAPRIL [Concomitant]
     Active Substance: ENALAPRIL

REACTIONS (8)
  - Haematochezia [None]
  - Nausea [None]
  - Dizziness [None]
  - Somnolence [None]
  - Movement disorder [None]
  - Blood pressure increased [None]
  - Anxiety [None]
  - Dysstasia [None]

NARRATIVE: CASE EVENT DATE: 20141017
